FAERS Safety Report 4313601-6 (Version None)
Quarter: 2004Q1

REPORT INFORMATION
  Report Type: 
  Country: None (occurrence: None)
  Receive Date: 20040305
  Receipt Date: 20040226
  Transmission Date: 20041129
  Serious: No
  Sender: FDA-Public Use
  Company Number: ENTC2004-0024

PATIENT
  Sex: Male

DRUGS (1)
  1. STALEVO 50 [Suspect]
     Indication: PARKINSON'S DISEASE
     Dosage: 50 MG/12.5 MG/200 MG 3 TIMES A DAY ORAL
     Route: 048
     Dates: start: 20030201

REACTIONS (2)
  - DIFFICULTY IN WALKING [None]
  - MOTOR DYSFUNCTION [None]
